FAERS Safety Report 11947722 (Version 1)
Quarter: 2016Q1

REPORT INFORMATION
  Report Type: Spontaneous
  Country: US (occurrence: US)
  Receive Date: 20160125
  Receipt Date: 20160125
  Transmission Date: 20160526
  Serious: No
  Sender: FDA-Public Use
  Company Number: US-TEVA-627601USA

PATIENT
  Age: 2 Year

DRUGS (1)
  1. PROAIR HFA [Suspect]
     Active Substance: ALBUTEROL SULFATE

REACTIONS (1)
  - Drug prescribing error [Recovered/Resolved]

NARRATIVE: CASE EVENT DATE: 20160119
